FAERS Safety Report 8935184 (Version 2)
Quarter: 2012Q4

REPORT INFORMATION
  Report Type: 
  Country: US (occurrence: US)
  Receive Date: 20121129
  Receipt Date: 20121214
  Transmission Date: 20130627
  Serious: Yes (Death)
  Sender: FDA-Public Use
  Company Number: US-TEVA-372793USA

PATIENT
  Age: 37 Year
  Sex: Female

DRUGS (3)
  1. FLUOXETINE [Suspect]
     Indication: ACCIDENTAL POISONING
     Route: 065
  2. METHADONE [Suspect]
     Indication: ACCIDENTAL POISONING
     Route: 065
  3. KEPPRA [Concomitant]
     Route: 065

REACTIONS (1)
  - Accidental poisoning [Fatal]
